FAERS Safety Report 15918641 (Version 1)
Quarter: 2019Q1

REPORT INFORMATION
  Report Type: Spontaneous
  Country: US (occurrence: US)
  Receive Date: 20190205
  Receipt Date: 20190205
  Transmission Date: 20190417
  Serious: Yes (Other)
  Sender: FDA-Public Use
  Company Number: US-RADIUS HEALTH, INC.-2019US000396

PATIENT
  Sex: Female

DRUGS (1)
  1. TYMLOS [Suspect]
     Active Substance: ABALOPARATIDE
     Indication: OSTEOPOROSIS POSTMENOPAUSAL
     Dosage: 80 MCG, QD
     Route: 058

REACTIONS (10)
  - Fatigue [Unknown]
  - Influenza [Unknown]
  - Nasopharyngitis [Unknown]
  - Diarrhoea [Unknown]
  - Vomiting [Unknown]
  - Laboratory test abnormal [Unknown]
  - Nausea [Unknown]
  - Neoplasm [Unknown]
  - Malaise [Unknown]
  - Dyspepsia [Unknown]
